FAERS Safety Report 5093397-3 (Version None)
Quarter: 2006Q3

REPORT INFORMATION
  Report Type: 
  Country: None (occurrence: None)
  Receive Date: 20060828
  Receipt Date: 20060811
  Transmission Date: 20061208
  Serious: Yes (Other)
  Sender: FDA-Public Use
  Company Number: PAR_0112_2005

PATIENT
  Age: 50 Year
  Sex: Female

DRUGS (1)
  1. ACTRON [Suspect]
     Indication: SCIATICA
     Dosage: DF UNK PO
     Route: 048

REACTIONS (1)
  - BRONCHOSPASM [None]
